FAERS Safety Report 8001909-2 (Version None)
Quarter: 2011Q4

REPORT INFORMATION
  Report Type: 
  Country: None (occurrence: None)
  Receive Date: 20111222
  Receipt Date: 20111216
  Transmission Date: 20120403
  Serious: Yes (Disabling)
  Sender: FDA-Public Use
  Company Number: UG-ABBOTT-11P-165-0840561-00

PATIENT
  Age: 42 Year
  Sex: Female

DRUGS (4)
  1. LAMIVUDINE [Concomitant]
     Indication: HIV INFECTION
     Dates: start: 20100702
  2. TENOFOVIR [Concomitant]
     Indication: HIV INFECTION
     Dates: start: 20100702
  3. LOPINAVIR/RITONAVIR [Suspect]
     Indication: HIV INFECTION
     Route: 048
     Dates: start: 20100702
  4. CO-TRIMAZOLE [Concomitant]
     Indication: PRODUCT USED FOR UNKNOWN INDICATION
     Dates: start: 20040329

REACTIONS (1)
  - CENTRAL NERVOUS SYSTEM LESION [None]
